FAERS Safety Report 22676578 (Version 3)
Quarter: 2023Q4

REPORT INFORMATION
  Report Type: Spontaneous
  Country: US (occurrence: US)
  Receive Date: 20230706
  Receipt Date: 20231010
  Transmission Date: 20240110
  Serious: No
  Sender: FDA-Public Use
  Company Number: US-BAYER-2023A090999

PATIENT
  Age: 80 Year
  Sex: Female

DRUGS (1)
  1. ESTRADIOL [Suspect]
     Active Substance: ESTRADIOL
     Dosage: 0.025MG/1D
     Route: 062

REACTIONS (4)
  - Device adhesion issue [None]
  - Application site rash [None]
  - Product quality issue [None]
  - Intentional device use issue [None]
